FAERS Safety Report 10101285 (Version 1)
Quarter: 2014Q2

REPORT INFORMATION
  Report Type: Spontaneous
  Country: US (occurrence: None)
  Receive Date: 20140423
  Receipt Date: 20140423
  Transmission Date: 20141212
  Serious: No
  Sender: FDA-Public Use
  Company Number: None

PATIENT
  Age: 52 Year
  Sex: Female
  Weight: 58.06 kg

DRUGS (1)
  1. UNISOM [Suspect]
     Dates: start: 20140403, end: 20140403

REACTIONS (5)
  - Contusion [None]
  - Fall [None]
  - Middle insomnia [None]
  - Hallucination [None]
  - Ligament sprain [None]
